FAERS Safety Report 8512526 (Version 3)
Quarter: 2015Q4

REPORT INFORMATION
  Report Type: Spontaneous
  Country: US (occurrence: US)
  Receive Date: 20120413
  Receipt Date: 20151104
  Transmission Date: 20160305
  Serious: No
  Sender: FDA-Public Use
  Company Number: US-ASTRAZENECA-2011SE72788

PATIENT
  Age: 48 Year
  Sex: Female
  Weight: 108.9 kg

DRUGS (7)
  1. SAPHRIS [Concomitant]
     Active Substance: ASENAPINE MALEATE
     Indication: BIPOLAR DISORDER
  2. NEXIUM [Suspect]
     Active Substance: ESOMEPRAZOLE MAGNESIUM
     Indication: GASTROOESOPHAGEAL REFLUX DISEASE
     Route: 048
  3. XANAX [Concomitant]
     Active Substance: ALPRAZOLAM
     Indication: NERVOUS SYSTEM DISORDER
  4. SAPHRIS [Concomitant]
     Active Substance: ASENAPINE MALEATE
     Indication: SLEEP DISORDER
  5. NEXIUM [Suspect]
     Active Substance: ESOMEPRAZOLE MAGNESIUM
     Indication: GASTROOESOPHAGEAL REFLUX DISEASE
     Route: 048
     Dates: end: 201306
  6. DESVENLAFAXINE. [Concomitant]
     Active Substance: DESVENLAFAXINE
     Indication: ANTIDEPRESSANT THERAPY
  7. KLONOPIN [Concomitant]
     Active Substance: CLONAZEPAM
     Indication: NERVOUS SYSTEM DISORDER

REACTIONS (7)
  - Bipolar disorder [Unknown]
  - Malaise [Unknown]
  - Schizophrenia [Unknown]
  - Drug dose omission [Unknown]
  - Drug ineffective [Unknown]
  - Dyspepsia [Unknown]
  - Gastrooesophageal reflux disease [Unknown]

NARRATIVE: CASE EVENT DATE: 201306
